FAERS Safety Report 16044354 (Version 27)
Quarter: 2024Q1

REPORT INFORMATION
  Report Type: Spontaneous
  Country: PL (occurrence: PL)
  Receive Date: 20190306
  Receipt Date: 20240205
  Transmission Date: 20240410
  Serious: Yes (Hospitalization, Other)
  Sender: FDA-Public Use
  Company Number: PHHY2019PL046583

PATIENT
  Age: 65 Year
  Sex: Female

DRUGS (46)
  1. VALSARTAN [Suspect]
     Active Substance: VALSARTAN
     Indication: Somatic symptom disorder
     Dosage: UNK
     Route: 065
  2. MONTELUKAST SODIUM [Suspect]
     Active Substance: MONTELUKAST SODIUM
     Indication: Somatic symptom disorder
     Dosage: UNK
     Route: 065
  3. FLUTICASONE [Suspect]
     Active Substance: FLUTICASONE
     Indication: Somatic dysfunction
     Dosage: UNK
     Route: 065
  4. FLUTICASONE [Suspect]
     Active Substance: FLUTICASONE
     Indication: Somatic symptom disorder
  5. SALMETEROL [Suspect]
     Active Substance: SALMETEROL
     Indication: Somatic symptom disorder
     Dosage: UNK
     Route: 065
  6. SALMETEROL [Suspect]
     Active Substance: SALMETEROL
     Indication: Product used for unknown indication
  7. LAMOTRIGINE [Suspect]
     Active Substance: LAMOTRIGINE
     Indication: Anxiety
     Dosage: GRADUALLY INCREASED DOSES UP TO 200 MG DAILY
     Route: 065
  8. LAMOTRIGINE [Suspect]
     Active Substance: LAMOTRIGINE
     Indication: Bipolar disorder
  9. LAMOTRIGINE [Suspect]
     Active Substance: LAMOTRIGINE
     Indication: Affective disorder
  10. NEBIVOLOL [Suspect]
     Active Substance: NEBIVOLOL
     Indication: Somatic symptom disorder
     Dosage: UNK
     Route: 065
  11. NEBIVOLOL [Suspect]
     Active Substance: NEBIVOLOL
     Indication: Product used for unknown indication
  12. ESOMEPRAZOLE MAGNESIUM [Suspect]
     Active Substance: ESOMEPRAZOLE\ESOMEPRAZOLE MAGNESIUM\ESOMEPRAZOLE MAGNESIUM DIHYDRATE
     Indication: Somatic symptom disorder
     Dosage: UNK
     Route: 065
  13. ESOMEPRAZOLE MAGNESIUM [Suspect]
     Active Substance: ESOMEPRAZOLE\ESOMEPRAZOLE MAGNESIUM\ESOMEPRAZOLE MAGNESIUM DIHYDRATE
     Indication: Somatic dysfunction
  14. VENLAFAXINE [Suspect]
     Active Substance: VENLAFAXINE HYDROCHLORIDE
     Indication: Anxiety
     Dosage: 300 MG, QD (UP TO 300 MG/DAY, DOSES WERE GRADUALLY REDUCED UNTIL 300MG, QD)
     Route: 065
  15. VENLAFAXINE [Suspect]
     Active Substance: VENLAFAXINE HYDROCHLORIDE
     Indication: Bipolar disorder
  16. VENLAFAXINE [Suspect]
     Active Substance: VENLAFAXINE HYDROCHLORIDE
     Indication: Affective disorder
  17. MIDAZOLAM [Suspect]
     Active Substance: MIDAZOLAM
     Indication: Bipolar II disorder
     Dosage: UNK
     Route: 065
  18. MIDAZOLAM [Suspect]
     Active Substance: MIDAZOLAM
     Indication: Anxiety
  19. MIDAZOLAM [Suspect]
     Active Substance: MIDAZOLAM
     Indication: Sleep disorder
  20. CLONAZEPAM [Suspect]
     Active Substance: CLONAZEPAM
     Indication: Fear
     Dosage: UNK
     Route: 065
  21. CLONAZEPAM [Suspect]
     Active Substance: CLONAZEPAM
     Indication: Anxiety
  22. CLONAZEPAM [Suspect]
     Active Substance: CLONAZEPAM
     Indication: Anxiety disorder
  23. CLONAZEPAM [Suspect]
     Active Substance: CLONAZEPAM
     Indication: Anxiety
  24. PAROXETINE [Suspect]
     Active Substance: PAROXETINE
     Indication: Bipolar disorder
     Dosage: UP TO 40 MG/DAY
     Route: 065
  25. PAROXETINE [Suspect]
     Active Substance: PAROXETINE
     Indication: Anxiety
  26. PAROXETINE [Suspect]
     Active Substance: PAROXETINE
     Indication: Affective disorder
  27. ESOMEPRAZOLE SODIUM [Suspect]
     Active Substance: ESOMEPRAZOLE SODIUM
     Indication: Product used for unknown indication
     Dosage: UNK
     Route: 065
  28. ESOMEPRAZOLE SODIUM [Suspect]
     Active Substance: ESOMEPRAZOLE SODIUM
     Indication: Somatic symptom disorder
  29. QUETIAPINE [Suspect]
     Active Substance: QUETIAPINE
     Indication: Bipolar II disorder
     Dosage: 200 MG, QD
     Route: 065
  30. QUETIAPINE [Suspect]
     Active Substance: QUETIAPINE
     Indication: Anxiety
  31. QUETIAPINE [Suspect]
     Active Substance: QUETIAPINE
     Indication: Affective disorder
  32. ZOLPIDEM [Suspect]
     Active Substance: ZOLPIDEM TARTRATE
     Indication: Bipolar II disorder
     Dosage: UNK
     Route: 065
  33. ZOLPIDEM [Suspect]
     Active Substance: ZOLPIDEM TARTRATE
     Indication: Insomnia
  34. ZOLPIDEM [Suspect]
     Active Substance: ZOLPIDEM TARTRATE
     Indication: Anxiety
  35. ZOLPIDEM [Suspect]
     Active Substance: ZOLPIDEM TARTRATE
     Indication: Sleep disorder
  36. OLANZAPINE [Suspect]
     Active Substance: OLANZAPINE
     Indication: Anxiety disorder
     Dosage: UNK
     Route: 065
  37. OLANZAPINE [Suspect]
     Active Substance: OLANZAPINE
     Indication: Fear
  38. OLANZAPINE [Suspect]
     Active Substance: OLANZAPINE
     Indication: Bipolar II disorder
  39. OLANZAPINE [Suspect]
     Active Substance: OLANZAPINE
     Indication: Anxiety
  40. CLOBETASOL [Suspect]
     Active Substance: CLOBETASOL
     Indication: Somatic symptom disorder
     Dosage: UNK
     Route: 061
  41. ALPRAZOLAM [Suspect]
     Active Substance: ALPRAZOLAM
     Indication: Anxiety disorder
     Dosage: UNK
     Route: 065
  42. ALPRAZOLAM [Suspect]
     Active Substance: ALPRAZOLAM
     Indication: Fear
  43. ALPRAZOLAM [Suspect]
     Active Substance: ALPRAZOLAM
     Indication: Anxiety
  44. HYDROCHLOROTHIAZIDE [Suspect]
     Active Substance: HYDROCHLOROTHIAZIDE
     Indication: Somatic symptom disorder
     Dosage: UNK
     Route: 005
  45. BUPROPION [Concomitant]
     Active Substance: BUPROPION
     Indication: Product used for unknown indication
     Dosage: UP 300 MG PER DAY
     Route: 065
  46. BUPROPION [Concomitant]
     Active Substance: BUPROPION
     Indication: Product used for unknown indication
     Dosage: UP TO 300MG/DAY
     Route: 065

REACTIONS (10)
  - Drug-induced liver injury [Recovered/Resolved]
  - Hepatic enzyme increased [Recovering/Resolving]
  - Anxiety [Recovering/Resolving]
  - Depression [Recovering/Resolving]
  - Insomnia [Recovering/Resolving]
  - Off label use [Unknown]
  - Product used for unknown indication [Unknown]
  - Drug ineffective [Unknown]
  - Therapeutic product effect incomplete [Unknown]
  - Product use in unapproved indication [Unknown]
